FAERS Safety Report 4964625-7 (Version None)
Quarter: 2006Q2

REPORT INFORMATION
  Report Type: 
  Country: None (occurrence: None)
  Receive Date: 20060406
  Receipt Date: 20051118
  Transmission Date: 20061013
  Serious: Yes (Hospitalization, Other)
  Sender: FDA-Public Use
  Company Number: US-MERCK-0511USA03495

PATIENT
  Age: 74 Year
  Sex: Male
  Weight: 98 kg

DRUGS (8)
  1. VIOXX [Suspect]
     Route: 048
     Dates: end: 20031201
  2. PRAZOSIN [Concomitant]
     Route: 048
  3. INDAPAMIDE [Concomitant]
     Route: 065
  4. ATENOLOL [Concomitant]
     Route: 048
  5. GLUCOPHAGE [Concomitant]
     Route: 048
  6. ACTONEL [Concomitant]
     Route: 065
  7. ACTOS [Concomitant]
     Route: 048
  8. LESCOL [Concomitant]
     Route: 048

REACTIONS (24)
  - ANAEMIA [None]
  - AORTIC DILATATION [None]
  - ARTHRALGIA [None]
  - ARTHROPATHY [None]
  - ASTHENIA [None]
  - CARDIAC FAILURE CONGESTIVE [None]
  - CEREBROVASCULAR ACCIDENT [None]
  - CONFUSIONAL STATE [None]
  - COORDINATION ABNORMAL [None]
  - DIZZINESS [None]
  - DYSPNOEA EXACERBATED [None]
  - DYSPNOEA EXERTIONAL [None]
  - FATIGUE [None]
  - HEADACHE [None]
  - MITRAL VALVE CALCIFICATION [None]
  - MITRAL VALVE INCOMPETENCE [None]
  - MUSCULOSKELETAL STIFFNESS [None]
  - NOCTURNAL DYSPNOEA [None]
  - PANCYTOPENIA [None]
  - PULMONARY HYPERTENSION [None]
  - VENTRICULAR HYPERTROPHY [None]
  - VISUAL ACUITY REDUCED [None]
  - WEIGHT DECREASED [None]
  - WHEEZING [None]
